FAERS Safety Report 4917153-9 (Version None)
Quarter: 2006Q1

REPORT INFORMATION
  Report Type: 
  Country: None (occurrence: None)
  Receive Date: 20060216
  Receipt Date: 20060216
  Transmission Date: 20060701
  Serious: Yes (Life-Threatening)
  Sender: FDA-Public Use
  Company Number: None

PATIENT
  Age: 15 Year
  Sex: Female
  Weight: 54 kg

DRUGS (4)
  1. ENBREL [Suspect]
     Indication: JUVENILE ARTHRITIS
     Dosage: 25 MG SQ  Q 2 WEEKS
     Route: 058
     Dates: start: 20050608, end: 20050912
  2. LITHIUM 300 MG TID [Suspect]
     Indication: DEPRESSION
     Dosage: 300 MG PO TID
     Route: 048
     Dates: start: 20050804, end: 20050912
  3. BENZTROPINE MESYLATE [Concomitant]
  4. RISPERIDONE [Concomitant]

REACTIONS (2)
  - BIPOLAR DISORDER [None]
  - TREMOR [None]
